FAERS Safety Report 9712675 (Version 2)
Quarter: 2013Q4

REPORT INFORMATION
  Report Type: Spontaneous
  Country: US (occurrence: US)
  Receive Date: 20131126
  Receipt Date: 20131126
  Transmission Date: 20140711
  Serious: No
  Sender: FDA-Public Use
  Company Number: US-BRISTOL-MYERS SQUIBB COMPANY-18896365

PATIENT
  Age: 55 Year
  Sex: Female

DRUGS (4)
  1. BYDUREON [Suspect]
     Indication: TYPE 2 DIABETES MELLITUS
     Dosage: 2ND INJECTION ON MAY2013
     Route: 058
  2. METFORMIN [Concomitant]
  3. COLACE [Concomitant]
  4. NARCOTIC NOS [Concomitant]

REACTIONS (2)
  - Constipation [Recovered/Resolved]
  - Gastric disorder [Recovered/Resolved]
